FAERS Safety Report 17826946 (Version 2)
Quarter: 2022Q2

REPORT INFORMATION
  Report Type: Spontaneous
  Country: CN (occurrence: None)
  Receive Date: 20200527
  Receipt Date: 20220412
  Transmission Date: 20220720
  Serious: Yes (Other)
  Sender: FDA-Public Use
  Company Number: CN-ROCHE-2606413

PATIENT
  Age: 64 Year
  Sex: Female

DRUGS (6)
  1. ALECTINIB [Suspect]
     Active Substance: ALECTINIB
     Indication: Lung adenocarcinoma stage III
     Route: 065
     Dates: start: 201911
  2. ALECTINIB [Suspect]
     Active Substance: ALECTINIB
     Route: 065
     Dates: start: 201912
  3. CEFOSELIS [Concomitant]
     Active Substance: CEFOSELIS
     Dosage: THE THERAPY DETAILS WAS UNKNOWN
     Dates: start: 20190101
  4. MAGNESIUM ISOGLYCYRRHIZINATE [Concomitant]
     Active Substance: MAGNESIUM ISOGLYCYRRHIZINATE
     Dosage: THE THERAPY DETAILS WAS UNKNOWN.
     Dates: start: 20190101
  5. PANTOPRAZOLE [Concomitant]
     Active Substance: PANTOPRAZOLE
     Dosage: THE THERAPY DETAILS WAS UNKNOWN.
     Dates: start: 20190101
  6. CRIZOTINIB [Concomitant]
     Active Substance: CRIZOTINIB
     Indication: Adenocarcinoma
     Route: 048
     Dates: start: 20191029

REACTIONS (5)
  - Bradycardia [Recovering/Resolving]
  - Hepatic function abnormal [Unknown]
  - Oedema [Unknown]
  - Anaemia [Unknown]
  - Cardiac dysfunction [Unknown]
